FAERS Safety Report 8096750-9 (Version None)
Quarter: 2012Q1

REPORT INFORMATION
  Report Type: 
  Country: None (occurrence: None)
  Receive Date: 20120129
  Receipt Date: 20111219
  Transmission Date: 20120608
  Serious: No
  Sender: FDA-Public Use
  Company Number: US-ABBOTT-11P-163-0857499-00

PATIENT
  Sex: Female
  Weight: 77.18 kg

DRUGS (12)
  1. LYRICA [Concomitant]
     Indication: ARTHRALGIA
     Dates: start: 20090101
  2. ALLOPURINOL [Concomitant]
     Indication: GOUT
  3. PROCRIT [Suspect]
     Indication: ANAEMIA
     Dates: start: 20090101, end: 20111001
  4. FOLIC ACID [Concomitant]
     Indication: SUPPLEMENTATION THERAPY
  5. LIPITOR [Concomitant]
     Indication: BLOOD CHOLESTEROL INCREASED
  6. LOSARTAN POTASSIUM [Concomitant]
     Indication: HYPERTENSION
  7. NEXIUM [Concomitant]
     Indication: GASTROOESOPHAGEAL REFLUX DISEASE
  8. HUMIRA [Suspect]
     Indication: RHEUMATOID ARTHRITIS
     Route: 058
     Dates: start: 20110101
  9. METOPROLOL TARTRATE [Concomitant]
     Indication: HYPERTENSION
  10. AMLODIPINE [Concomitant]
     Indication: HYPERTENSION
  11. KIONEX [Concomitant]
     Indication: RENAL FAILURE
     Dosage: 8 TSP WEEKLY IN WATER
     Dates: start: 20080101
  12. LUMIGAN [Concomitant]
     Indication: GLAUCOMA
     Dosage: 1 GTT OS DAILY

REACTIONS (5)
  - FATIGUE [None]
  - FEELING COLD [None]
  - CONTUSION [None]
  - RENAL IMPAIRMENT [None]
  - INCREASED TENDENCY TO BRUISE [None]
